FAERS Safety Report 5478091-9 (Version None)
Quarter: 2007Q4

REPORT INFORMATION
  Report Type: 
  Country: None (occurrence: None)
  Receive Date: 20071005
  Receipt Date: 20070924
  Transmission Date: 20080405
  Serious: Yes (Other)
  Sender: FDA-Public Use
  Company Number: BE-AMGEN-UK244719

PATIENT
  Sex: Male
  Weight: 59 kg

DRUGS (6)
  1. ARANESP [Suspect]
     Indication: RENAL FAILURE CHRONIC
     Route: 042
     Dates: start: 20030214
  2. CALCIUM CARBONATE [Concomitant]
     Route: 048
     Dates: start: 20070328
  3. LORAZEPAM [Concomitant]
     Route: 048
     Dates: start: 20070527
  4. WARFARIN SODIUM [Concomitant]
     Route: 048
     Dates: start: 20070831, end: 20070917
  5. CORDARONE [Concomitant]
     Route: 048
     Dates: start: 20040308
  6. MOLSIDOMINE [Concomitant]
     Route: 048
     Dates: start: 20050126

REACTIONS (7)
  - ATRIAL FIBRILLATION [None]
  - CEREBRAL ISCHAEMIA [None]
  - COORDINATION ABNORMAL [None]
  - HAEMOGLOBIN DECREASED [None]
  - MENTAL IMPAIRMENT [None]
  - MYELODYSPLASTIC SYNDROME [None]
  - OCCULT BLOOD POSITIVE [None]
